FAERS Safety Report 5936256-3 (Version None)
Quarter: 2008Q4

REPORT INFORMATION
  Report Type: 
  Country: None (occurrence: None)
  Receive Date: 20081030
  Receipt Date: 20080812
  Transmission Date: 20090506
  Serious: No
  Sender: FDA-Public Use
  Company Number: A0743610A

PATIENT
  Age: 90 Year
  Sex: Male

DRUGS (2)
  1. SEREVENT [Suspect]
     Indication: DRUG USE FOR UNKNOWN INDICATION
     Dosage: 50MCG UNKNOWN
     Route: 055
  2. AEROBID [Suspect]
     Indication: DRUG USE FOR UNKNOWN INDICATION

REACTIONS (1)
  - THERAPEUTIC RESPONSE DECREASED [None]
